FAERS Safety Report 22157758 (Version 2)
Quarter: 2024Q1

REPORT INFORMATION
  Report Type: Spontaneous
  Country: US (occurrence: US)
  Receive Date: 20230330
  Receipt Date: 20240308
  Transmission Date: 20240409
  Serious: Yes (Other)
  Sender: FDA-Public Use
  Company Number: US-PFIZER INC-PV202300058306

PATIENT
  Age: 71 Year
  Sex: Female

DRUGS (5)
  1. XELJANZ XR [Suspect]
     Active Substance: TOFACITINIB CITRATE
     Indication: Polyarthritis
     Dosage: 11 MG, 1X/DAY (TAKE 11 MG BY MOUTH 1 TIME EACH DAY)
     Route: 048
  2. XELJANZ XR [Suspect]
     Active Substance: TOFACITINIB CITRATE
     Indication: Chronic kidney disease
  3. XELJANZ XR [Suspect]
     Active Substance: TOFACITINIB CITRATE
     Indication: Rheumatoid arthritis
  4. XELJANZ XR [Suspect]
     Active Substance: TOFACITINIB CITRATE
     Indication: Anaemia
  5. XELJANZ XR [Suspect]
     Active Substance: TOFACITINIB CITRATE
     Indication: End stage renal disease

REACTIONS (14)
  - Neck surgery [Unknown]
  - Craniofacial fracture [Unknown]
  - Head injury [Unknown]
  - Pain [Unknown]
  - Hypoaesthesia [Unknown]
  - Pain in extremity [Unknown]
  - Arthralgia [Unknown]
  - Loss of personal independence in daily activities [Unknown]
  - Carpal tunnel syndrome [Recovering/Resolving]
  - Rotator cuff syndrome [Unknown]
  - Pain in extremity [Recovered/Resolved]
  - Peripheral swelling [Unknown]
  - Muscular weakness [Unknown]
  - Neck pain [Unknown]

NARRATIVE: CASE EVENT DATE: 20230710
